FAERS Safety Report 4358557-5 (Version None)
Quarter: 2004Q2

REPORT INFORMATION
  Report Type: 
  Country: None (occurrence: None)
  Receive Date: 20040512
  Receipt Date: 20040429
  Transmission Date: 20050107
  Serious: Yes (Hospitalization)
  Sender: FDA-Public Use
  Company Number: 04P-056-0259242-00

PATIENT
  Sex: Female

DRUGS (2)
  1. DEPAKOTE [Suspect]
     Indication: BIPOLAR DISORDER
     Dosage: 500 MG, PER ORAL
     Route: 048
     Dates: start: 20030101, end: 20030101
  2. CLOZAPINE [Suspect]
     Indication: PSYCHOTIC DISORDER
     Dosage: 100 MG, PER ORAL
     Route: 048
     Dates: start: 20030101, end: 20030101

REACTIONS (6)
  - APATHY [None]
  - CONFUSIONAL STATE [None]
  - FAECAL INCONTINENCE [None]
  - SPEECH DISORDER [None]
  - STUPOR [None]
  - URINARY INCONTINENCE [None]
